FAERS Safety Report 7980095-9 (Version None)
Quarter: 2011Q4

REPORT INFORMATION
  Report Type: 
  Country: None (occurrence: None)
  Receive Date: 20111214
  Receipt Date: 20111208
  Transmission Date: 20120403
  Serious: Yes (Hospitalization)
  Sender: FDA-Public Use
  Company Number: US-MERCK-1112USA01283

PATIENT
  Sex: Female

DRUGS (3)
  1. COZAAR [Suspect]
     Route: 048
     Dates: start: 20110101
  2. COZAAR [Suspect]
     Indication: HYPERTENSION
     Route: 048
     Dates: end: 20110101
  3. PREVACID [Concomitant]
     Route: 065

REACTIONS (6)
  - RASH [None]
  - BLOOD PRESSURE INCREASED [None]
  - GASTROOESOPHAGEAL REFLUX DISEASE [None]
  - ABDOMINAL DISCOMFORT [None]
  - PRURITUS [None]
  - DRUG DISPENSING ERROR [None]
